FAERS Safety Report 8340647-3 (Version None)
Quarter: 2012Q2

REPORT INFORMATION
  Report Type: 
  Country: None (occurrence: None)
  Receive Date: 20120507
  Receipt Date: 20091005
  Transmission Date: 20120825
  Serious: Yes (Hospitalization)
  Sender: FDA-Public Use
  Company Number: US-TEVA-2009011103

PATIENT
  Sex: Male
  Weight: 88.984 kg

DRUGS (4)
  1. HYZAAR [Concomitant]
  2. FERROUS SULFATE TAB [Concomitant]
  3. TREANDA [Suspect]
     Indication: CHRONIC LYMPHOCYTIC LEUKAEMIA
     Route: 042
     Dates: start: 20091001
  4. COMPAZINE [Concomitant]
     Indication: NAUSEA

REACTIONS (1)
  - PNEUMONIA [None]
